FAERS Safety Report 25996035 (Version 1)
Quarter: 2025Q4

REPORT INFORMATION
  Report Type: Spontaneous
  Country: GB (occurrence: GB)
  Receive Date: 20251104
  Receipt Date: 20251104
  Transmission Date: 20260117
  Serious: Yes (Death, Other)
  Sender: MYLAN
  Company Number: GB-MHRA-MIDB-e4999cbf-5bed-48f5-b7dc-140821c03a12

PATIENT
  Sex: Female

DRUGS (36)
  1. TAMOXIFEN [Suspect]
     Active Substance: TAMOXIFEN
     Indication: Product used for unknown indication
     Dosage: 1 DOSAGE FORM, QD (ONE TO BE TAKEN EACH DAY)
  2. TAMOXIFEN [Suspect]
     Active Substance: TAMOXIFEN
     Dosage: 1 DOSAGE FORM, QD (ONE TO BE TAKEN EACH DAY)
     Route: 065
  3. TAMOXIFEN [Suspect]
     Active Substance: TAMOXIFEN
     Dosage: 1 DOSAGE FORM, QD (ONE TO BE TAKEN EACH DAY)
     Route: 065
  4. TAMOXIFEN [Suspect]
     Active Substance: TAMOXIFEN
     Dosage: 1 DOSAGE FORM, QD (ONE TO BE TAKEN EACH DAY)
  5. PREGABALIN [Concomitant]
     Active Substance: PREGABALIN
     Dosage: 1 DOSAGE FORM, BID (ONE TO BE TAKEN TWICE A DAY)
  6. PREGABALIN [Concomitant]
     Active Substance: PREGABALIN
     Dosage: 1 DOSAGE FORM, BID (ONE TO BE TAKEN TWICE A DAY)
     Route: 065
  7. PREGABALIN [Concomitant]
     Active Substance: PREGABALIN
     Dosage: 1 DOSAGE FORM, BID (ONE TO BE TAKEN TWICE A DAY)
     Route: 065
  8. PREGABALIN [Concomitant]
     Active Substance: PREGABALIN
     Dosage: 1 DOSAGE FORM, BID (ONE TO BE TAKEN TWICE A DAY)
  9. ACETAMINOPHEN [Concomitant]
     Active Substance: ACETAMINOPHEN
     Dosage: 2 DOSAGE FORM, QID (TAKE TWO FOUR TIMES A DAY)
  10. ACETAMINOPHEN [Concomitant]
     Active Substance: ACETAMINOPHEN
     Dosage: 2 DOSAGE FORM, QID (TAKE TWO FOUR TIMES A DAY)
     Route: 065
  11. ACETAMINOPHEN [Concomitant]
     Active Substance: ACETAMINOPHEN
     Dosage: 2 DOSAGE FORM, QID (TAKE TWO FOUR TIMES A DAY)
     Route: 065
  12. ACETAMINOPHEN [Concomitant]
     Active Substance: ACETAMINOPHEN
     Dosage: 2 DOSAGE FORM, QID (TAKE TWO FOUR TIMES A DAY)
  13. OXYCODONE [Concomitant]
     Active Substance: OXYCODONE
     Dosage: 1 DOSAGE FORM, BID (TAKE ONE EVERY 12 HOURS)
  14. OXYCODONE [Concomitant]
     Active Substance: OXYCODONE
     Dosage: 1 DOSAGE FORM, BID (TAKE ONE EVERY 12 HOURS)
     Route: 065
  15. OXYCODONE [Concomitant]
     Active Substance: OXYCODONE
     Dosage: 1 DOSAGE FORM, BID (TAKE ONE EVERY 12 HOURS)
     Route: 065
  16. OXYCODONE [Concomitant]
     Active Substance: OXYCODONE
     Dosage: 1 DOSAGE FORM, BID (TAKE ONE EVERY 12 HOURS)
  17. LORAZEPAM [Concomitant]
     Active Substance: LORAZEPAM
     Dosage: 0.5 DOSAGE FORM, PRN (HALF A TABLET PRN/ FOUR TIMES A DAY WHEN REQUIRED)
  18. LORAZEPAM [Concomitant]
     Active Substance: LORAZEPAM
     Dosage: 0.5 DOSAGE FORM, PRN (HALF A TABLET PRN/ FOUR TIMES A DAY WHEN REQUIRED)
     Route: 065
  19. LORAZEPAM [Concomitant]
     Active Substance: LORAZEPAM
     Dosage: 0.5 DOSAGE FORM, PRN (HALF A TABLET PRN/ FOUR TIMES A DAY WHEN REQUIRED)
     Route: 065
  20. LORAZEPAM [Concomitant]
     Active Substance: LORAZEPAM
     Dosage: 0.5 DOSAGE FORM, PRN (HALF A TABLET PRN/ FOUR TIMES A DAY WHEN REQUIRED)
  21. OMEPRAZOLE [Concomitant]
     Active Substance: OMEPRAZOLE
     Dosage: 1 DOSAGE FORM, QD (ONE TO BE TAKEN EACH DAY)
  22. OMEPRAZOLE [Concomitant]
     Active Substance: OMEPRAZOLE
     Dosage: 1 DOSAGE FORM, QD (ONE TO BE TAKEN EACH DAY)
     Route: 065
  23. OMEPRAZOLE [Concomitant]
     Active Substance: OMEPRAZOLE
     Dosage: 1 DOSAGE FORM, QD (ONE TO BE TAKEN EACH DAY)
     Route: 065
  24. OMEPRAZOLE [Concomitant]
     Active Substance: OMEPRAZOLE
     Dosage: 1 DOSAGE FORM, QD (ONE TO BE TAKEN EACH DAY)
  25. BISOPROLOL [Concomitant]
     Active Substance: BISOPROLOL
     Dosage: 1 DOSAGE FORM, QD (TAKE ONE TABLET EACH DAY)
  26. BISOPROLOL [Concomitant]
     Active Substance: BISOPROLOL
     Dosage: 1 DOSAGE FORM, QD (TAKE ONE TABLET EACH DAY)
     Route: 065
  27. BISOPROLOL [Concomitant]
     Active Substance: BISOPROLOL
     Dosage: 1 DOSAGE FORM, QD (TAKE ONE TABLET EACH DAY)
     Route: 065
  28. BISOPROLOL [Concomitant]
     Active Substance: BISOPROLOL
     Dosage: 1 DOSAGE FORM, QD (TAKE ONE TABLET EACH DAY)
  29. FUROSEMIDE [Concomitant]
     Active Substance: FUROSEMIDE
     Dosage: 1 DOSAGE FORM, AM (ONE TO BE TAKEN EACH MORNING)
  30. FUROSEMIDE [Concomitant]
     Active Substance: FUROSEMIDE
     Dosage: 1 DOSAGE FORM, AM (ONE TO BE TAKEN EACH MORNING)
     Route: 065
  31. FUROSEMIDE [Concomitant]
     Active Substance: FUROSEMIDE
     Dosage: 1 DOSAGE FORM, AM (ONE TO BE TAKEN EACH MORNING)
     Route: 065
  32. FUROSEMIDE [Concomitant]
     Active Substance: FUROSEMIDE
     Dosage: 1 DOSAGE FORM, AM (ONE TO BE TAKEN EACH MORNING)
  33. OXYCODONE HYDROCHLORIDE [Concomitant]
     Active Substance: OXYCODONE HYDROCHLORIDE
     Dosage: 1 DOSAGE FORM, BID (ONE TO BE TAKEN EVERY 12 HOURS)
  34. OXYCODONE HYDROCHLORIDE [Concomitant]
     Active Substance: OXYCODONE HYDROCHLORIDE
     Dosage: 1 DOSAGE FORM, BID (ONE TO BE TAKEN EVERY 12 HOURS)
     Route: 065
  35. OXYCODONE HYDROCHLORIDE [Concomitant]
     Active Substance: OXYCODONE HYDROCHLORIDE
     Dosage: 1 DOSAGE FORM, BID (ONE TO BE TAKEN EVERY 12 HOURS)
     Route: 065
  36. OXYCODONE HYDROCHLORIDE [Concomitant]
     Active Substance: OXYCODONE HYDROCHLORIDE
     Dosage: 1 DOSAGE FORM, BID (ONE TO BE TAKEN EVERY 12 HOURS)

REACTIONS (1)
  - Thrombocytopenia [Fatal]
